FAERS Safety Report 4657406-5 (Version None)
Quarter: 2005Q2

REPORT INFORMATION
  Report Type: 
  Country: None (occurrence: None)
  Receive Date: 20050510
  Receipt Date: 20050415
  Transmission Date: 20051028
  Serious: Yes (Hospitalization)
  Sender: FDA-Public Use
  Company Number: NSADSS2002040624

PATIENT
  Sex: Male
  Weight: 90.72 kg

DRUGS (22)
  1. REMICADE [Suspect]
     Route: 041
  2. REMICADE [Suspect]
     Route: 041
  3. REMICADE [Suspect]
     Route: 041
  4. REMICADE [Suspect]
     Route: 041
  5. REMICADE [Suspect]
     Indication: RHEUMATOID ARTHRITIS
     Route: 041
  6. PREDNISONE [Suspect]
     Indication: RHEUMATOID ARTHRITIS
  7. MOBIC [Concomitant]
  8. HYDROXYCHLOROQUINE SULFATE [Concomitant]
  9. FOSAMAX [Concomitant]
  10. ADVAIR DISKUS 100/50 [Concomitant]
  11. ADVAIR DISKUS 100/50 [Concomitant]
  12. ALBUTEROL [Concomitant]
  13. MULTI-VITAMINS [Concomitant]
  14. MULTI-VITAMINS [Concomitant]
  15. MULTI-VITAMINS [Concomitant]
  16. MULTI-VITAMINS [Concomitant]
  17. MULTI-VITAMINS [Concomitant]
  18. MULTI-VITAMINS [Concomitant]
  19. MULTI-VITAMINS [Concomitant]
  20. MULTI-VITAMINS [Concomitant]
  21. CALCIUM GLUCONATE [Concomitant]
  22. PLAQUENIL [Concomitant]

REACTIONS (40)
  - ABSCESS [None]
  - ABSCESS LIMB [None]
  - ARRHYTHMIA [None]
  - BLOOD URINE PRESENT [None]
  - CELLULITIS [None]
  - CHEST PAIN [None]
  - COLONIC POLYP [None]
  - CONVULSION [None]
  - DIARRHOEA [None]
  - DIZZINESS [None]
  - DNA ANTIBODY POSITIVE [None]
  - DRUG HYPERSENSITIVITY [None]
  - DYSPHONIA [None]
  - DYSPNOEA [None]
  - FALL [None]
  - FATIGUE [None]
  - HEADACHE [None]
  - HEPATITIS B ANTIBODY POSITIVE [None]
  - HYPERHIDROSIS [None]
  - HYPERSENSITIVITY [None]
  - INFECTION [None]
  - LUPUS-LIKE SYNDROME [None]
  - MALAISE [None]
  - MYOCARDIAL ISCHAEMIA [None]
  - MYOPATHY [None]
  - OVERDOSE [None]
  - PAIN [None]
  - PALPITATIONS [None]
  - PLEURAL EFFUSION [None]
  - PLEURITIC PAIN [None]
  - RECTAL HAEMORRHAGE [None]
  - SKIN DISCOLOURATION [None]
  - SKIN NODULE [None]
  - SLEEP APNOEA SYNDROME [None]
  - THERAPEUTIC RESPONSE DECREASED [None]
  - TOOTH ABSCESS [None]
  - TREMOR [None]
  - VISION BLURRED [None]
  - VOMITING [None]
  - WEIGHT INCREASED [None]
